FAERS Safety Report 19143736 (Version 2)
Quarter: 2021Q4

REPORT INFORMATION
  Report Type: Report from Study
  Country: None (occurrence: CA)
  Receive Date: 20210416
  Receipt Date: 20211016
  Transmission Date: 20220303
  Serious: Yes (Other)
  Sender: FDA-Public Use
  Company Number: CA-ABBVIE-21K-028-3858394-00

PATIENT
  Sex: Male

DRUGS (2)
  1. HUMIRA [Suspect]
     Active Substance: ADALIMUMAB
     Indication: Crohn^s disease
     Route: 058
     Dates: start: 20200909
  2. HUMIRA [Suspect]
     Active Substance: ADALIMUMAB
     Route: 058

REACTIONS (6)
  - Enterocolonic fistula [Recovering/Resolving]
  - Enterovesical fistula [Recovering/Resolving]
  - Ileocaecal resection [Unknown]
  - Small intestinal resection [Unknown]
  - Sigmoidectomy [Unknown]
  - Crohn^s disease [Recovering/Resolving]
